FAERS Safety Report 6910352-6 (Version None)
Quarter: 2010Q3

REPORT INFORMATION
  Report Type: 
  Country: None (occurrence: None)
  Receive Date: 20100806
  Receipt Date: 20100727
  Transmission Date: 20110219
  Serious: Yes (Other)
  Sender: FDA-Public Use
  Company Number: US-PFIZER INC-2007069248

PATIENT
  Sex: Male
  Weight: 104.3 kg

DRUGS (20)
  1. CHANTIX [Suspect]
     Indication: SMOKING CESSATION THERAPY
     Dosage: 0.5 MG, 1X/DAY
     Route: 048
     Dates: start: 20070804, end: 20070816
  2. CHANTIX [Suspect]
     Dosage: UNK
     Route: 048
     Dates: start: 20080101
  3. CHANTIX [Suspect]
     Dosage: UNK
     Dates: start: 20090101
  4. CHANTIX [Suspect]
     Dosage: 0.5 MG, 1X/DAY
     Dates: start: 20100101
  5. LIPITOR [Concomitant]
     Dosage: UNK
  6. RANITIDINE [Concomitant]
     Dosage: UNK
  7. PROTONIX [Concomitant]
     Dosage: UNK
  8. ALTACE [Concomitant]
     Dosage: UNK
  9. TOPROL-XL [Concomitant]
     Dosage: UNK
  10. ADVAIR DISKUS 100/50 [Concomitant]
     Indication: CHRONIC OBSTRUCTIVE PULMONARY DISEASE
     Dosage: UNK
  11. SPIRIVA [Concomitant]
     Dosage: UNK
  12. ALBUTEROL [Concomitant]
     Indication: CHRONIC OBSTRUCTIVE PULMONARY DISEASE
     Dosage: UNK
  13. ALBUTEROL [Concomitant]
     Indication: DYSPNOEA
  14. CELEXA [Concomitant]
     Dosage: UNK
  15. ATIVAN [Concomitant]
     Dosage: UNK
  16. AMOXICILLIN [Concomitant]
     Indication: LOWER RESPIRATORY TRACT INFECTION
     Dosage: UNK
  17. AMOXICILLIN [Concomitant]
     Indication: EAR INFECTION
  18. VICODIN [Concomitant]
     Dosage: UNK
  19. NASONEX [Concomitant]
     Indication: SINUS DISORDER
     Dosage: UNK
  20. NASONEX [Concomitant]
     Indication: HYPERSENSITIVITY

REACTIONS (11)
  - ABNORMAL BEHAVIOUR [None]
  - ABNORMAL DREAMS [None]
  - CHOKING [None]
  - CHRONIC OBSTRUCTIVE PULMONARY DISEASE [None]
  - DIZZINESS [None]
  - DRUG INEFFECTIVE [None]
  - HEARING IMPAIRED [None]
  - NAUSEA [None]
  - PULMONARY HAEMORRHAGE [None]
  - RETCHING [None]
  - TOBACCO USER [None]
